FAERS Safety Report 9884011 (Version 1)
Quarter: 2014Q1

REPORT INFORMATION
  Report Type: Spontaneous
  Country: US (occurrence: US)
  Receive Date: 20140210
  Receipt Date: 20140210
  Transmission Date: 20141002
  Serious: No
  Sender: FDA-Public Use
  Company Number: US-ALLERGAN-1316747US

PATIENT
  Age: 51 Year
  Sex: Female

DRUGS (4)
  1. BOTOX COSMETIC [Suspect]
     Indication: SKIN WRINKLING
     Dosage: UNK, SINGLE
     Route: 030
     Dates: start: 20131023, end: 20131023
  2. BOTOX COSMETIC [Suspect]
     Indication: SKIN WRINKLING
  3. STEROIDS [Concomitant]
     Indication: EAR INFECTION
     Dosage: UNK
     Dates: start: 20131015
  4. ALLEGRA [Concomitant]
     Indication: NASOPHARYNGITIS
     Dosage: UNK

REACTIONS (2)
  - Wrong technique in drug usage process [Unknown]
  - Injection site pain [Recovered/Resolved]
